FAERS Safety Report 13052938 (Version 1)
Quarter: 2016Q4

REPORT INFORMATION
  Report Type: Report from Study
  Country: US (occurrence: US)
  Receive Date: 20161222
  Receipt Date: 20161222
  Transmission Date: 20170207
  Serious: Yes (Other)
  Sender: FDA-Public Use
  Company Number: US-AMGEN-USASL2016172839

PATIENT
  Age: 54 Year
  Sex: Female
  Weight: 76.64 kg

DRUGS (9)
  1. REPATHA [Suspect]
     Active Substance: EVOLOCUMAB
     Indication: HYPERCHOLESTEROLAEMIA
  2. INSULIN [Concomitant]
     Active Substance: INSULIN NOS
     Dosage: UNK AS DIRECTED
     Dates: start: 20140313
  3. KLONOPIN [Concomitant]
     Active Substance: CLONAZEPAM
     Dosage: 0.5 MG, AS NECESSARY
     Route: 048
  4. COQ10 [Concomitant]
     Active Substance: UBIDECARENONE
     Dosage: 200 MG, QD
     Route: 048
  5. NITROGLYCERIN. [Concomitant]
     Active Substance: NITROGLYCERIN
     Dosage: 0.4 MG, AS NECESSARY
     Route: 060
  6. ASPIRIN. [Concomitant]
     Active Substance: ASPIRIN
     Dosage: 81 MG, QD
     Route: 048
  7. RAPAFLO [Concomitant]
     Active Substance: SILODOSIN
     Dosage: 8 MG, QD WITH MEAL
     Route: 048
  8. REPATHA [Suspect]
     Active Substance: EVOLOCUMAB
     Indication: BLOOD CHOLESTEROL INCREASED
     Dosage: 140 MG/ML, Q2WK
     Route: 058
     Dates: start: 20160728
  9. VITAMIN B12 [Concomitant]
     Active Substance: CYANOCOBALAMIN
     Dosage: 1000 MUG, QWK
     Route: 058
     Dates: start: 20160908

REACTIONS (22)
  - Hypotension [Unknown]
  - Myalgia [Unknown]
  - Vertigo [Unknown]
  - Polyuria [Unknown]
  - Diarrhoea [Unknown]
  - Low density lipoprotein increased [Unknown]
  - Coronary artery disease [Unknown]
  - Haemorrhagic diathesis [Unknown]
  - Abdominal pain [Unknown]
  - Asthenia [Unknown]
  - Arthralgia [Unknown]
  - Constipation [Unknown]
  - Dizziness [Unknown]
  - Anxiety disorder [Unknown]
  - Fatigue [Unknown]
  - Vitamin B12 increased [Unknown]
  - Intentional product misuse [Unknown]
  - Influenza like illness [Unknown]
  - Increased tendency to bruise [Unknown]
  - Gastrointestinal disorder [Unknown]
  - Insomnia [Unknown]
  - Headache [Unknown]

NARRATIVE: CASE EVENT DATE: 20160908
